FAERS Safety Report 6503100-5 (Version None)
Quarter: 2009Q4

REPORT INFORMATION
  Report Type: 
  Country: None (occurrence: None)
  Receive Date: 20091217
  Receipt Date: 20091209
  Transmission Date: 20100525
  Serious: Yes (Death)
  Sender: FDA-Public Use
  Company Number: JP-ROCHE-674843

PATIENT
  Age: 53 Year
  Sex: Male

DRUGS (5)
  1. ROCEPHIN [Suspect]
     Indication: PNEUMONIA
     Route: 042
     Dates: start: 20090101, end: 20090101
  2. PIRFENIDONE [Suspect]
     Indication: PNEUMONIA
     Route: 048
     Dates: start: 20090101, end: 20090101
  3. PIRFENIDONE [Suspect]
     Route: 048
     Dates: start: 20090101, end: 20090101
  4. PREDNISOLONE [Concomitant]
     Route: 048
     Dates: start: 20090101
  5. ENDOXAN [Concomitant]
     Dates: start: 20090101, end: 20090101

REACTIONS (1)
  - INTERSTITIAL LUNG DISEASE [None]
